FAERS Safety Report 8770601 (Version 1)
Quarter: 2012Q4

REPORT INFORMATION
  Report Type: 
  Country: US (occurrence: US)
  Receive Date: 20120906
  Receipt Date: 20120906
  Transmission Date: 20130627
  Serious: Yes (Hospitalization)
  Sender: FDA-Public Use
  Company Number: US-BAYER-2012-091242

PATIENT
  Age: 47 Year
  Sex: Female

DRUGS (5)
  1. YAZ [Suspect]
     Indication: DYSMENORRHOEA
  2. GIANVI [Suspect]
  3. SYNTHROID [Concomitant]
     Indication: HYPOTHYROIDISM
     Dosage: 100 UNK, UNK,mcg,daily
     Route: 048
     Dates: start: 20090721, end: 20120714
  4. CALCIUM [Concomitant]
     Dosage: UNK
     Dates: start: 20110406
  5. CLARITIN [Concomitant]
     Dosage: UNK
     Dates: start: 20110406

REACTIONS (2)
  - Intracranial venous sinus thrombosis [None]
  - Jugular vein thrombosis [None]
